FAERS Safety Report 5475652-8 (Version None)
Quarter: 2007Q4

REPORT INFORMATION
  Report Type: 
  Country: None (occurrence: None)
  Receive Date: 20071001
  Receipt Date: 20070917
  Transmission Date: 20080405
  Serious: Yes (Other)
  Sender: FDA-Public Use
  Company Number: S07-USA-02803-01

PATIENT
  Age: 56 Year
  Sex: Female

DRUGS (8)
  1. LEXAPRO [Suspect]
     Indication: DEPRESSION
     Dosage: 10 MG QD PO
     Route: 048
     Dates: start: 20060331
  2. LEXAPRO [Suspect]
     Indication: DEPRESSION
     Dosage: 10 MG QD PO
     Route: 048
     Dates: start: 20060101, end: 20060101
  3. LEXAPRO [Suspect]
     Indication: DEPRESSION
     Dosage: 10 MG QD PO
     Route: 048
  4. LOPRESSOR [Concomitant]
  5. NASONEX [Concomitant]
  6. ZOCOR [Concomitant]
  7. CLARITIN-D [Concomitant]
  8. HYDROCHLOROTHIAZIDE [Concomitant]

REACTIONS (4)
  - MUSCLE SPASMS [None]
  - NECK PAIN [None]
  - ODYNOPHAGIA [None]
  - RHEUMATOID ARTHRITIS [None]
